FAERS Safety Report 9099919 (Version 3)
Quarter: 2013Q1

REPORT INFORMATION
  Report Type: Spontaneous
  Country: US (occurrence: US)
  Receive Date: 20130214
  Receipt Date: 20130328
  Transmission Date: 20140127
  Serious: Yes (Other)
  Sender: FDA-Public Use
  Company Number: US-PFIZER INC-2013052883

PATIENT
  Age: 60 Year
  Sex: Female

DRUGS (7)
  1. PROTONIX [Suspect]
     Dosage: 40 MG, 1X/DAY
     Route: 048
  2. ASPIRIN [Concomitant]
     Dosage: UNK
  3. IBUPROFEN [Concomitant]
     Dosage: UNK
  4. HCTZ [Concomitant]
     Indication: BLOOD PRESSURE
     Dosage: UNK
  5. SALSALATE [Concomitant]
     Indication: PAIN
     Dosage: UNK
  6. NITROSTAT [Concomitant]
     Dosage: UNK, AS NEEDED
  7. MULTIVITAMINS [Concomitant]
     Dosage: 40 MG, 1X/DAY
     Route: 048

REACTIONS (1)
  - Pneumonia [Not Recovered/Not Resolved]
